FAERS Safety Report 13650024 (Version 1)
Quarter: 2017Q2

REPORT INFORMATION
  Report Type: Spontaneous
  Country: US (occurrence: US)
  Receive Date: 20170613
  Receipt Date: 20170613
  Transmission Date: 20170830
  Serious: Yes (Hospitalization)
  Sender: FDA-Public Use
  Company Number: None

PATIENT
  Age: 65 Year
  Sex: Female

DRUGS (15)
  1. PANTOPRAZOLE [Concomitant]
     Active Substance: PANTOPRAZOLE
  2. ASPIRIN. [Concomitant]
     Active Substance: ASPIRIN
  3. ASCORBIC ACID. [Concomitant]
     Active Substance: ASCORBIC ACID
  4. ACETAMINOPHEN. [Concomitant]
     Active Substance: ACETAMINOPHEN
  5. LEVOTHYROXINE. [Concomitant]
     Active Substance: LEVOTHYROXINE
  6. LENALIDOMIDE [Concomitant]
     Active Substance: LENALIDOMIDE
  7. REVLIMID [Suspect]
     Active Substance: LENALIDOMIDE
     Indication: PLASMA CELL MYELOMA
     Dosage: 5MG DAILY X 21D/28D ORAL
     Route: 048
     Dates: start: 201702, end: 201704
  8. NPH INSULIN [Concomitant]
     Active Substance: INSULIN BEEF
  9. PREGABALIN. [Concomitant]
     Active Substance: PREGABALIN
  10. SIMVASTATIN. [Concomitant]
     Active Substance: SIMVASTATIN
  11. SENNOSIDES. [Concomitant]
     Active Substance: SENNOSIDES
  12. CHOLECALCIFEROL [Concomitant]
     Active Substance: CHOLECALCIFEROL
  13. CALCIUM CARBONATE. [Concomitant]
     Active Substance: CALCIUM CARBONATE
  14. ALBUTEROL HFA [Concomitant]
     Active Substance: ALBUTEROL SULFATE
  15. ACYCLOVIR. [Concomitant]
     Active Substance: ACYCLOVIR

REACTIONS (10)
  - Septic shock [None]
  - Staphylococcal infection [None]
  - Confusional state [None]
  - Hepatic failure [None]
  - Respiratory failure [None]
  - Pancytopenia [None]
  - Vomiting [None]
  - Diarrhoea [None]
  - Acute kidney injury [None]
  - Dialysis [None]

NARRATIVE: CASE EVENT DATE: 20170422
